FAERS Safety Report 11729100 (Version 1)
Quarter: 2015Q4

REPORT INFORMATION
  Report Type: Spontaneous
  Country: FR (occurrence: FR)
  Receive Date: 20151112
  Receipt Date: 20151112
  Transmission Date: 20160304
  Serious: Yes (Hospitalization)
  Sender: FDA-Public Use
  Company Number: FR-SA-2015SA175847

PATIENT
  Age: 95 Year
  Sex: Female

DRUGS (7)
  1. ELISOR [Suspect]
     Active Substance: PRAVASTATIN SODIUM
     Dosage: STRENGTH 20MG
     Route: 048
  2. PARIET [Suspect]
     Active Substance: RABEPRAZOLE SODIUM
     Dosage: STRENGTH 20MG
     Route: 048
  3. PLAVIX [Suspect]
     Active Substance: CLOPIDOGREL BISULFATE
     Route: 048
  4. LASILIX [Suspect]
     Active Substance: FUROSEMIDE
     Route: 048
  5. ISOPTINE [Suspect]
     Active Substance: VERAPAMIL HYDROCHLORIDE
     Dosage: STRENGTH: 120MG
     Route: 048
  6. LANTUS [Suspect]
     Active Substance: INSULIN GLARGINE
     Route: 058
  7. SEVIKAR [Suspect]
     Active Substance: AMLODIPINE BESYLATE\OLMESARTAN MEDOXOMIL
     Route: 048

REACTIONS (4)
  - Fall [Recovered/Resolved]
  - Craniocerebral injury [Recovered/Resolved]
  - Periorbital haematoma [Recovering/Resolving]
  - Orthostatic hypotension [Recovered/Resolved]

NARRATIVE: CASE EVENT DATE: 20150712
